FAERS Safety Report 17505815 (Version 2)
Quarter: 2020Q1

REPORT INFORMATION
  Report Type: Report from Study
  Country: None (occurrence: CO)
  Receive Date: 20200306
  Receipt Date: 20200327
  Transmission Date: 20200409
  Serious: Yes (Life-Threatening, Hospitalization)
  Sender: FDA-Public Use
  Company Number: CO-ABBVIE-20K-036-3304844-00

PATIENT
  Sex: Female
  Weight: 80 kg

DRUGS (3)
  1. HUMIRA [Suspect]
     Active Substance: ADALIMUMAB
     Indication: PSORIATIC ARTHROPATHY
     Route: 058
  2. CEPHALEXIN. [Suspect]
     Active Substance: CEPHALEXIN
     Indication: INFLUENZA
     Route: 048
     Dates: start: 20200228, end: 20200228
  3. HUMIRA [Suspect]
     Active Substance: ADALIMUMAB
     Indication: PSORIATIC ARTHROPATHY
     Route: 058
     Dates: start: 20161119

REACTIONS (4)
  - Cardiac arrest [Recovering/Resolving]
  - Influenza [Recovering/Resolving]
  - Blood pressure decreased [Recovering/Resolving]
  - Drug hypersensitivity [Unknown]

NARRATIVE: CASE EVENT DATE: 2020
